FAERS Safety Report 5295992-5 (Version None)
Quarter: 2007Q2

REPORT INFORMATION
  Report Type: 
  Country: None (occurrence: None)
  Receive Date: 20070406
  Receipt Date: 20070327
  Transmission Date: 20071010
  Serious: Yes (Hospitalization)
  Sender: FDA-Public Use
  Company Number: 2007RR-06600

PATIENT
  Age: 32 Year
  Sex: Female

DRUGS (2)
  1. FUROSEMIDE [Suspect]
     Dosage: 90 MG, ORAL
     Route: 048
  2. TEA [Concomitant]

REACTIONS (1)
  - PSEUDO-BARTTER SYNDROME [None]
